FAERS Safety Report 16297007 (Version 1)
Quarter: 2019Q2

REPORT INFORMATION
  Report Type: Spontaneous
  Country: US (occurrence: US)
  Receive Date: 20190510
  Receipt Date: 20190510
  Transmission Date: 20190711
  Serious: Yes (Life-Threatening, Hospitalization, Other)
  Sender: FDA-Public Use
  Company Number: US-MYLANLABS-2019M1043448

PATIENT
  Age: 26 Year
  Sex: Male

DRUGS (1)
  1. LOPERAMIDE [Suspect]
     Active Substance: LOPERAMIDE
     Indication: PRODUCT USED FOR UNKNOWN INDICATION
     Dosage: 150 PILLS PER DAY, EACH CONTAINING 2 MG OF LOPERAMIDE OVER THE PAST 8 MONTHS
     Route: 048

REACTIONS (10)
  - Electrocardiogram QT prolonged [Recovering/Resolving]
  - Electrocardiogram abnormal [Recovering/Resolving]
  - Drug level increased [Recovering/Resolving]
  - Intentional overdose [Recovering/Resolving]
  - Cardio-respiratory arrest [Recovered/Resolved]
  - Tachycardia [Unknown]
  - Dizziness [Recovered/Resolved]
  - Torsade de pointes [Recovered/Resolved]
  - Drug abuse [Recovering/Resolving]
  - Syncope [Recovered/Resolved]
